FAERS Safety Report 5255760-7 (Version None)
Quarter: 2007Q1

REPORT INFORMATION
  Report Type: 
  Country: None (occurrence: None)
  Receive Date: 20070305
  Receipt Date: 20070221
  Transmission Date: 20070707
  Serious: Yes (Other)
  Sender: FDA-Public Use
  Company Number: US-PFIZER INC-2007015285

PATIENT
  Sex: Female
  Weight: 77.1 kg

DRUGS (8)
  1. LYRICA [Suspect]
     Indication: FIBROMYALGIA
  2. CELEBREX [Suspect]
  3. MORPHINE SULFATE [Concomitant]
  4. ARTHROTEC [Concomitant]
  5. CYMBALTA [Concomitant]
  6. ZYRTEC [Concomitant]
  7. ASCORBIC ACID [Concomitant]
  8. CALCIUM [Concomitant]

REACTIONS (3)
  - HAEMATOCRIT INCREASED [None]
  - HAEMOGLOBIN INCREASED [None]
  - ORTHOSTATIC HYPOTENSION [None]
